FAERS Safety Report 6233994-2 (Version None)
Quarter: 2009Q2

REPORT INFORMATION
  Report Type: 
  Country: None (occurrence: None)
  Receive Date: 20090618
  Receipt Date: 20090609
  Transmission Date: 20091009
  Serious: Yes (Life-Threatening, Hospitalization)
  Sender: FDA-Public Use
  Company Number: JP-JNJFOC-20090601380

PATIENT
  Sex: Female

DRUGS (12)
  1. REMICADE [Suspect]
     Dosage: 1 INFUSION
     Route: 042
  2. REMICADE [Suspect]
     Dosage: 2 INFUSIONS ON UNSPECIFIED DATES
     Route: 042
  3. REMICADE [Suspect]
     Indication: RHEUMATOID ARTHRITIS
     Route: 042
  4. DIOVAN [Concomitant]
     Indication: HYPERTENSION
     Route: 048
  5. PREDNISOLONE [Concomitant]
     Indication: RHEUMATOID ARTHRITIS
     Route: 048
  6. SOLETON [Concomitant]
     Indication: RHEUMATOID ARTHRITIS
     Dosage: DOSE: 2 TAB
     Route: 048
  7. RHEUMATREX [Concomitant]
     Indication: RHEUMATOID ARTHRITIS
     Route: 048
  8. LASIX [Concomitant]
     Indication: HYPERTENSION
     Route: 048
  9. ADALAT [Concomitant]
     Indication: HYPERTENSION
     Route: 048
  10. ZANTAC [Concomitant]
     Indication: GASTRIC ULCER
     Route: 048
  11. MEVALOTIN [Concomitant]
     Indication: HYPERLIPIDAEMIA
     Route: 048
  12. WARFARIN SODIUM [Concomitant]
     Indication: AORTIC VALVE INCOMPETENCE
     Route: 048

REACTIONS (2)
  - HYPOTENSION [None]
  - TUBERCULOSIS [None]
